FAERS Safety Report 24586907 (Version 1)
Quarter: 2024Q4

REPORT INFORMATION
  Report Type: Spontaneous
  Country: US (occurrence: US)
  Receive Date: 20241107
  Receipt Date: 20241107
  Transmission Date: 20250115
  Serious: Yes (Life-Threatening, Hospitalization, Disabling, Other)
  Sender: ALEXION PHARMACEUTICALS
  Company Number: US-AstraZeneca-CH-00725263A

PATIENT
  Age: 49 Year
  Weight: 107.95 kg

DRUGS (3)
  1. FARXIGA [Suspect]
     Active Substance: DAPAGLIFLOZIN PROPANEDIOL
     Indication: Renal impairment
     Dosage: 10 MILLIGRAM, QD
  2. PREDNISONE [Concomitant]
     Active Substance: PREDNISONE
     Route: 065
  3. VANCOMYCIN [Concomitant]
     Active Substance: VANCOMYCIN
     Route: 065

REACTIONS (16)
  - Fournier^s gangrene [Recovering/Resolving]
  - Renal failure [Unknown]
  - Abdominal abscess [Unknown]
  - Anaemia [Unknown]
  - Chills [Unknown]
  - Heart rate increased [Unknown]
  - Pyrexia [Unknown]
  - Hidradenitis [Unknown]
  - Hypotension [Unknown]
  - Decreased appetite [Unknown]
  - Tachycardia [Unknown]
  - Confusional state [Unknown]
  - Nausea [Unknown]
  - Asthenia [Unknown]
  - Dehydration [Unknown]
  - Vomiting [Unknown]
